FAERS Safety Report 6840092-3 (Version None)
Quarter: 2010Q3

REPORT INFORMATION
  Report Type: 
  Country: None (occurrence: None)
  Receive Date: 20100709
  Receipt Date: 20100624
  Transmission Date: 20110219
  Serious: Yes (Other)
  Sender: FDA-Public Use
  Company Number: AUR-APL-2010-01682

PATIENT
  Age: 34 Year
  Sex: Male

DRUGS (3)
  1. METFORMIN HCL [Suspect]
  2. LIPITOR [Suspect]
  3. PANTOPRAZOLE POWDER FOR SOLUTION INFUSION [Concomitant]

REACTIONS (1)
  - PAIN IN EXTREMITY [None]
